FAERS Safety Report 6136439-6 (Version None)
Quarter: 2009Q1

REPORT INFORMATION
  Report Type: 
  Country: None (occurrence: None)
  Receive Date: 20090330
  Receipt Date: 20090126
  Transmission Date: 20090719
  Serious: No
  Sender: FDA-Public Use
  Company Number: US-BAUSCH-2009BL000332

PATIENT
  Age: 84 Year
  Sex: Female

DRUGS (1)
  1. OFLOXACIN OTIC SOLUTION 0.3% [Suspect]
     Route: 047
     Dates: start: 20090119, end: 20090123

REACTIONS (3)
  - EYE IRRITATION [None]
  - INTRAOCULAR PRESSURE INCREASED [None]
  - MEDICATION ERROR [None]
